FAERS Safety Report 16990686 (Version 2)
Quarter: 2021Q1

REPORT INFORMATION
  Report Type: Spontaneous
  Country: US (occurrence: US)
  Receive Date: 20191104
  Receipt Date: 20210318
  Transmission Date: 20210419
  Serious: Yes (Other)
  Sender: FDA-Public Use
  Company Number: US-PFIZER INC-2016530943

PATIENT
  Age: 71 Year
  Sex: Female

DRUGS (30)
  1. CYMBALTA [Concomitant]
     Active Substance: DULOXETINE HYDROCHLORIDE
     Dosage: 60 MG, DAILY
     Route: 048
     Dates: start: 20160324
  2. MULTI [Concomitant]
     Dosage: 1 DF, DAILY (18 MG IRON?600?MCG?80?MCG)
     Route: 048
  3. PROBIOTIC 10 [Concomitant]
     Active Substance: DIETARY SUPPLEMENT\PROBIOTICS
     Dosage: 1 DF, DAILY (TAKE 1 CAPSULE BY ORAL ROUTE DAILY)
     Route: 048
  4. VITAMIN D3 [Concomitant]
     Active Substance: CHOLECALCIFEROL
     Dosage: 1000 IU, 2X/DAY
     Route: 048
     Dates: start: 20150127
  5. XYLIMELTS [Concomitant]
     Indication: DRY THROAT
  6. LYRICA [Suspect]
     Active Substance: PREGABALIN
     Dosage: 100 MG, 2X/DAY
     Route: 048
     Dates: start: 20161109
  7. CYMBALTA [Concomitant]
     Active Substance: DULOXETINE HYDROCHLORIDE
     Dosage: 60 MG, 1X/DAY
  8. XYLIMELTS [Concomitant]
     Indication: DRY MOUTH
     Dosage: UNK [USE WITH CPAP]
  9. BACLOFEN. [Concomitant]
     Active Substance: BACLOFEN
     Indication: MYALGIA
     Dosage: 10 MG, AS NEEDED (3 TIMES A DAY)
     Route: 048
     Dates: start: 20160825
  10. PROVENTIL HFA [SALBUTAMOL] [Concomitant]
     Dosage: UNK, AS NEEDED [INHALE 2 PUFFS BY INHALATION ROUTE EVERY 6 HOURS/90 MCG/ACTUATION INHALATION]
     Route: 055
     Dates: start: 20150929
  11. DICYCLOMINE [Concomitant]
     Active Substance: DICYCLOMINE HYDROCHLORIDE
     Dosage: 20 MG, AS NEEDED (TAKE 1 TABLET BY ORAL ROUTE 3 TIMES A DAY AS NEEDED)
     Route: 048
  12. MIRALAX [Concomitant]
     Active Substance: POLYETHYLENE GLYCOL 3350
     Dosage: UNK, DAILY
     Route: 048
  13. AMITRIPTYLINE HCL [Concomitant]
     Active Substance: AMITRIPTYLINE
     Dosage: 25 MG, UNK [QH5 (EVERY 5 HOURS)]
  14. CALCIUM 600+D3 [Concomitant]
     Active Substance: CALCIUM CARBONATE\VITAMIN D
     Dosage: 1 DF, 2X/DAY [600 MG CALCIUM? 200 UNIT ORAL CAPSULE]
     Route: 048
  15. MUCINEX [Concomitant]
     Active Substance: GUAIFENESIN
     Dosage: 600 MG, UNK
     Route: 048
  16. TYLENOL EXTRA STRENGTH [Concomitant]
     Active Substance: ACETAMINOPHEN
     Dosage: 1000 MG, 1X/DAY(TAKE 2 TABLETS BY ORAL ROUTE ONCE A DAY (AT BEDTIME) FOR 30 DAYS)
     Route: 048
     Dates: start: 20150918
  17. XARELTO [Concomitant]
     Active Substance: RIVAROXABAN
     Dosage: 20 MG, 1X/DAY (WITH THE EVENING MEAL)
     Route: 048
  18. LYRICA [Suspect]
     Active Substance: PREGABALIN
     Dosage: 1 CAPSULE (150MG) BY ORAL ROUTE 2 TIMES PER DAY
     Route: 048
  19. OMEGA 3 FISH OIL [FISH OIL] [Concomitant]
     Dosage: UNK (900?1,400 MG ORAL CAPSULE, DELAYED RELEASE (DR/EC))
     Route: 048
  20. PONARIS [FLUCONAZOLE] [Concomitant]
     Dosage: UNK, DAILY (INHALE 1?2 SPRAYS BY NASAL ROUTE AS DIRECTED DAILY)
     Route: 045
  21. SYSTANE (HYPROMELLOSE 2910 (4000 MPA.S)) [Concomitant]
     Active Substance: HYPROMELLOSE 2910 (4000 MPA.S)
     Dosage: 1 GTT, 4X/DAY [0.4?0.3 % OPHTHALMIC DROPS/INSTILL 1 DROP IN AFFECTED EYE ]
     Route: 047
  22. TRAZODONE [Concomitant]
     Active Substance: TRAZODONE HYDROCHLORIDE
     Indication: SLEEP DISORDER
     Dosage: 100 MG, AS NEEDED [TAKE 1 TO 3 TABLETS BY MOUTH EVERY EVENING]
     Route: 048
     Dates: start: 20141008
  23. ALBUTEROL SULFATE. [Concomitant]
     Active Substance: ALBUTEROL SULFATE
     Dosage: UNK, AS NEEDED [NEBULIZER]
     Route: 055
  24. ALBUTEROL SULFATE. [Concomitant]
     Active Substance: ALBUTEROL SULFATE
     Dosage: 2.5 MG, AS NEEDED [INHALE 3 MILLILITERS (2.5 MG) BY NEBULIZATION ROUTE EVERY 6 HOURS]
     Route: 055
     Dates: start: 20160425
  25. ALLEGRA ALLERGY [Concomitant]
     Active Substance: FEXOFENADINE HYDROCHLORIDE
     Dosage: 180 MG, 1X/DAY
     Route: 048
  26. LANSOPRAZOLE. [Concomitant]
     Active Substance: LANSOPRAZOLE
     Dosage: 30 MG, 2X/DAY
     Route: 048
  27. SYMBICORT [Concomitant]
     Active Substance: BUDESONIDE\FORMOTEROL FUMARATE DIHYDRATE
     Dosage: UNK, 2X/DAY [2 PUFFS BY INHALATION ROUTE 2 TIMES PER DAY IN THE MORNING AND EVENING FOR 90 DAYS]
     Route: 055
     Dates: start: 20160107
  28. SYNTHROID [Concomitant]
     Active Substance: LEVOTHYROXINE SODIUM
     Dosage: 100 UG, 1X/DAY
     Route: 048
  29. ZIPRASIDONE HCL [Concomitant]
     Active Substance: ZIPRASIDONE HYDROCHLORIDE
     Indication: INSOMNIA
     Dosage: 40 MG, 1X/DAY(TAKE 1 CAPSULE BY ORAL ROUTE QD (ONCE A DAY) AFTER THE DINNER MEAL)
     Route: 048
     Dates: start: 20161028
  30. MONTELUKAST [Concomitant]
     Active Substance: MONTELUKAST SODIUM
     Dosage: 10 MG, 1X/DAY (IN THE EVENLNG FOR 90 DAYS)
     Route: 048
     Dates: start: 20160509

REACTIONS (6)
  - Blood pressure fluctuation [Unknown]
  - Constipation [Unknown]
  - Autonomic neuropathy [Unknown]
  - Peripheral sensory neuropathy [Unknown]
  - Syncope [Unknown]
  - Diabetes mellitus [Unknown]
